FAERS Safety Report 6570309-4 (Version None)
Quarter: 2010Q1

REPORT INFORMATION
  Report Type: 
  Country: None (occurrence: None)
  Receive Date: 20100204
  Receipt Date: 20100201
  Transmission Date: 20100710
  Serious: Yes (Hospitalization)
  Sender: FDA-Public Use
  Company Number: US-BRISTOL-MYERS SQUIBB COMPANY-14957153

PATIENT
  Age: 42 Year
  Sex: Male
  Weight: 96 kg

DRUGS (1)
  1. ABILIFY [Suspect]
     Indication: BIPOLAR DISORDER
     Dosage: STARTED ABT 2YEARS AGO,DOSE REDUCED TO 10MG

REACTIONS (2)
  - OBSESSIVE-COMPULSIVE DISORDER [None]
  - PNEUMONIA [None]
